FAERS Safety Report 7658948-0 (Version None)
Quarter: 2011Q3

REPORT INFORMATION
  Report Type: 
  Country: None (occurrence: None)
  Receive Date: 20110805
  Receipt Date: 20110729
  Transmission Date: 20111222
  Serious: Yes (Other)
  Sender: FDA-Public Use
  Company Number: US-ABBOTT-11P-163-0841205-00

PATIENT
  Sex: Female

DRUGS (12)
  1. SYNTHROID [Concomitant]
     Indication: HYPOTHYROIDISM
  2. VOLTAREN [Concomitant]
     Indication: SPINAL FUSION SURGERY
  3. FLEXERIL [Concomitant]
     Indication: PAIN
  4. HUMIRA [Suspect]
     Indication: PSORIATIC ARTHROPATHY
     Dates: start: 20100401
  5. LOCOID LIPOCREAM [Concomitant]
     Indication: PSORIASIS
  6. VENTOLIN DS [Concomitant]
     Indication: ASTHMA
  7. PRILOSEC [Concomitant]
     Indication: GASTROOESOPHAGEAL REFLUX DISEASE
  8. CYMBALTA [Concomitant]
     Indication: FIBROMYALGIA
  9. PATADAY EYE DROPS [Concomitant]
     Indication: HYPERSENSITIVITY
  10. PRILOSEC [Concomitant]
     Indication: ULCER
  11. SINGULAIR [Concomitant]
     Indication: HYPERSENSITIVITY
  12. MOTRIN [Concomitant]
     Indication: PAIN

REACTIONS (7)
  - EXPOSURE TO COMMUNICABLE DISEASE [None]
  - TUBERCULIN TEST POSITIVE [None]
  - ARTHRALGIA [None]
  - SYNOVIAL CYST [None]
  - NEUROMA [None]
  - CYST [None]
  - OSTEOPOROSIS [None]
